FAERS Safety Report 5240769-X (Version None)
Quarter: 2007Q1

REPORT INFORMATION
  Report Type: 
  Country: None (occurrence: None)
  Receive Date: 20061208
  Receipt Date: 20050805
  Transmission Date: 20070707
  Serious: Yes (Other)
  Sender: FDA-Public Use
  Company Number: 2005UW11623

PATIENT
  Age: 44 Year
  Sex: Female
  Weight: 70.306 kg

DRUGS (1)
  1. CRESTOR [Suspect]
     Indication: BLOOD CHOLESTEROL INCREASED
     Dates: start: 20050701

REACTIONS (6)
  - ABDOMINAL PAIN [None]
  - ARTHRALGIA [None]
  - GINGIVAL PAIN [None]
  - INCREASED UPPER AIRWAY SECRETION [None]
  - PAIN IN EXTREMITY [None]
  - TOOTHACHE [None]
